FAERS Safety Report 6768216-7 (Version None)
Quarter: 2010Q2

REPORT INFORMATION
  Report Type: 
  Country: None (occurrence: None)
  Receive Date: 20100614
  Receipt Date: 20100602
  Transmission Date: 20101027
  Serious: Yes (Hospitalization)
  Sender: FDA-Public Use
  Company Number: JP-MERCK-1006USA00943

PATIENT
  Age: 74 Year
  Sex: Female

DRUGS (15)
  1. JANUVIA [Suspect]
     Indication: DIABETES MELLITUS
     Route: 048
     Dates: start: 20100416, end: 20100501
  2. FLUITRAN [Concomitant]
     Route: 048
  3. ASPARA K [Concomitant]
     Dosage: DIVIDED DOSE FREQUENCY U
     Route: 048
     Dates: end: 20100502
  4. BAYCARON [Concomitant]
     Dosage: DIVIDED DOSE FREQUENCY U
     Route: 048
  5. COZAAR [Concomitant]
     Route: 048
  6. TAKEPRON [Concomitant]
     Dosage: DIVIDED DOSE FREQUENCY U
     Route: 048
  7. DOXAZOSIN MESYLATE [Concomitant]
     Route: 048
     Dates: end: 20100502
  8. ZYLORIC [Concomitant]
     Dosage: DIVIDED DOSE FREQUENCY U
     Route: 048
  9. URALYT [Concomitant]
     Dosage: DIVIDED DOSE FREQUENCY U
     Route: 048
  10. WARFARIN POTASSIUM [Concomitant]
     Dosage: DIVIDED DOSE FREQUENCY U
     Route: 048
  11. FUROSEMIDE [Concomitant]
     Route: 065
  12. DEPAS [Concomitant]
     Dosage: DIVIDED DOSE FREQUENCY U
     Route: 048
  13. MAGMITT [Concomitant]
     Route: 048
  14. ANPLAG [Concomitant]
     Route: 048
  15. LAXOBERON [Concomitant]
     Dosage: DAILY DOSAGE UNKNOWN
     Route: 048

REACTIONS (1)
  - INTESTINAL OBSTRUCTION [None]
